FAERS Safety Report 23437652 (Version 1)
Quarter: 2024Q1

REPORT INFORMATION
  Report Type: Other
  Country: CN (occurrence: CN)
  Receive Date: 20240124
  Receipt Date: 20240124
  Transmission Date: 20240410
  Serious: Yes (Other)
  Sender: FDA-Public Use
  Company Number: CN-GE HEALTHCARE-2024CSU000484

PATIENT
  Age: 64 Year
  Sex: Male

DRUGS (1)
  1. OMNIPAQUE [Suspect]
     Active Substance: IOHEXOL
     Indication: Angiogram
     Dosage: 100 ML, TOTAL
     Route: 041
     Dates: start: 20240110, end: 20240110

REACTIONS (1)
  - Product closure issue [Recovered/Resolved]

NARRATIVE: CASE EVENT DATE: 20240110
